FAERS Safety Report 18980436 (Version 6)
Quarter: 2021Q2

REPORT INFORMATION
  Report Type: Spontaneous
  Country: CA (occurrence: CA)
  Receive Date: 20210308
  Receipt Date: 20210524
  Transmission Date: 20210717
  Serious: Yes (Other)
  Sender: FDA-Public Use
  Company Number: CA-PFIZER INC-2020392212

PATIENT
  Age: 43 Year
  Sex: Male
  Weight: 78 kg

DRUGS (9)
  1. RUXIENCE [Suspect]
     Active Substance: RITUXIMAB-PVVR
     Dosage: 750 MG, WEEKLY
     Route: 042
     Dates: start: 20201021
  2. RUXIENCE [Suspect]
     Active Substance: RITUXIMAB-PVVR
     Indication: GRANULOMATOSIS WITH POLYANGIITIS
     Dosage: 750 MG, WEEKLY (4 DOSES )
     Route: 042
     Dates: start: 20201007, end: 20201028
  3. RUXIENCE [Suspect]
     Active Substance: RITUXIMAB-PVVR
     Dosage: 750 MG, WEEKLY
     Route: 042
     Dates: start: 20201028
  4. RUXIENCE [Suspect]
     Active Substance: RITUXIMAB-PVVR
     Dosage: 750 MG, WEEKLY
     Route: 042
     Dates: start: 20201014, end: 20201014
  5. RUXIENCE [Suspect]
     Active Substance: RITUXIMAB-PVVR
     Dosage: 750 MG, WEEKLY
     Route: 042
     Dates: start: 20201028
  6. PREDNISONE. [Concomitant]
     Active Substance: PREDNISONE
     Dosage: 1 DF (HIGH DOSE, DOSAGE INFORMATION NOT AVAILABLEUNKNOWN STATUS)
     Route: 065
  7. RUXIENCE [Suspect]
     Active Substance: RITUXIMAB-PVVR
     Dosage: 750 MG, WEEKLY
     Route: 042
     Dates: start: 20201007
  8. RUXIENCE [Suspect]
     Active Substance: RITUXIMAB-PVVR
     Dosage: 750 MG, WEEKLY
     Route: 042
     Dates: start: 20201014
  9. RUXIENCE [Suspect]
     Active Substance: RITUXIMAB-PVVR
     Dosage: 1000 MG EVERY 4 MONTH
     Route: 042
     Dates: start: 20210430

REACTIONS (6)
  - Infection [Unknown]
  - Drug ineffective [Unknown]
  - Off label use [Unknown]
  - Condition aggravated [Not Recovered/Not Resolved]
  - Off label use [Unknown]
  - Product use issue [Unknown]

NARRATIVE: CASE EVENT DATE: 20201007
